FAERS Safety Report 9925280 (Version 1)
Quarter: 2014Q1

REPORT INFORMATION
  Report Type: Spontaneous
  Country: BR (occurrence: BR)
  Receive Date: 20140226
  Receipt Date: 20140226
  Transmission Date: 20141002
  Serious: Yes (Other)
  Sender: FDA-Public Use
  Company Number: BR-009507513-1402BRA012031

PATIENT
  Sex: Female
  Weight: 73 kg

DRUGS (8)
  1. VYTORIN [Suspect]
     Indication: HYPERCHOLESTEROLAEMIA
     Dosage: UNK
     Route: 048
  2. ATENOLOL [Concomitant]
     Indication: HYPERTENSION
     Dosage: UNK
     Route: 048
  3. PURAN T4 [Concomitant]
     Indication: HYPOTHYROIDISM
     Dosage: UNK
  4. OMEPRAZOLE [Concomitant]
  5. NAUSEDRON [Concomitant]
  6. BROMOPRIDE [Concomitant]
  7. NISTATIN [Concomitant]
  8. TAMARINE [Concomitant]

REACTIONS (1)
  - Breast neoplasm [Not Recovered/Not Resolved]
